FAERS Safety Report 6551418-2 (Version None)
Quarter: 2010Q1

REPORT INFORMATION
  Report Type: 
  Country: None (occurrence: None)
  Receive Date: 20100126
  Receipt Date: 20100120
  Transmission Date: 20100710
  Serious: Yes (Other)
  Sender: FDA-Public Use
  Company Number: TR-ROXANE LABORATORIES, INC.-2010-RO-00062RO

PATIENT
  Age: 60 Year
  Sex: Female

DRUGS (4)
  1. CYCLOPHOSPHAMIDE [Suspect]
     Indication: NEPHROTIC SYNDROME
  2. MYCOPHENOLATE MOFETIL [Suspect]
     Indication: IMMUNOSUPPRESSION
     Dosage: 2 G
  3. DEFLAZACORT [Suspect]
     Indication: NEPHROTIC SYNDROME
     Dosage: 42 MG
  4. DEFLAZACORT [Suspect]
     Dosage: 6 MG

REACTIONS (2)
  - KAPOSI'S SARCOMA [None]
  - NEPHROTIC SYNDROME [None]
